FAERS Safety Report 19475716 (Version 1)
Quarter: 2021Q2

REPORT INFORMATION
  Report Type: Report from Study
  Country: None (occurrence: US)
  Receive Date: 20210629
  Receipt Date: 20210629
  Transmission Date: 20210717
  Serious: Yes (Other)
  Sender: FDA-Public Use
  Company Number: US-ABBVIE-20K-163-3586456-00

PATIENT
  Sex: Female
  Weight: 107.14 kg

DRUGS (9)
  1. PROGESTERONE IN OIL [Concomitant]
     Active Substance: PROGESTERONE
     Indication: IN VITRO FERTILISATION
  2. HUMIRA [Suspect]
     Active Substance: ADALIMUMAB
     Indication: HIDRADENITIS
     Route: 058
     Dates: start: 201809, end: 202011
  3. PFIZER?BIONTECH COVID?19 VACCINE [Concomitant]
     Active Substance: TOZINAMERAN
     Indication: COVID-19 IMMUNISATION
     Dosage: FIRST DOSE
     Route: 030
     Dates: start: 202101, end: 202101
  4. HUMIRA [Suspect]
     Active Substance: ADALIMUMAB
     Route: 058
     Dates: start: 202106
  5. LORATADINE. [Concomitant]
     Active Substance: LORATADINE
     Indication: HYPERSENSITIVITY
  6. PFIZER?BIONTECH COVID?19 VACCINE [Concomitant]
     Active Substance: TOZINAMERAN
     Dosage: SECOND DOSE
     Route: 030
     Dates: start: 202102, end: 202102
  7. ESTROGEN [Concomitant]
     Active Substance: ESTROGENS
     Indication: PREGNANCY
  8. ESTRADIOL. [Concomitant]
     Active Substance: ESTRADIOL
     Indication: IN VITRO FERTILISATION
     Route: 062
  9. PRE NATAL VITAMINS [Concomitant]
     Active Substance: VITAMINS
     Indication: PRENATAL CARE

REACTIONS (5)
  - Incision site impaired healing [Recovering/Resolving]
  - Hidradenitis [Recovering/Resolving]
  - Cervix dystocia [Recovered/Resolved]
  - Maternal exposure during pregnancy [Unknown]
  - Live birth [Unknown]

NARRATIVE: CASE EVENT DATE: 2021
